FAERS Safety Report 16880337 (Version 2)
Quarter: 2019Q4

REPORT INFORMATION
  Report Type: Spontaneous
  Country: BR (occurrence: BR)
  Receive Date: 20191003
  Receipt Date: 20191018
  Transmission Date: 20200122
  Serious: Yes (Other)
  Sender: FDA-Public Use
  Company Number: BR-TORRENT-00005121

PATIENT
  Age: 54 Year
  Sex: Male
  Weight: 104 kg

DRUGS (6)
  1. ASPIRINA PREVENT [Concomitant]
     Active Substance: ASPIRIN
     Indication: ANTIPLATELET THERAPY
     Dosage: ONE TABLET AT LUNCH. OVER 5 YEARS AGO
     Route: 048
     Dates: start: 2014
  2. NAPRIX D [Concomitant]
     Indication: HYPERTENSION
     Dosage: ONE TABLET IN THE MORNING. OVER 5 YEARS AGO
     Route: 048
     Dates: start: 2014
  3. GALVUS MET [Concomitant]
     Active Substance: METFORMIN HYDROCHLORIDE\VILDAGLIPTIN
     Indication: TYPE 2 DIABETES MELLITUS
     Dosage: EVERY 12 HOURS, OVER 5 YEARS AGO
     Dates: start: 2014
  4. LIPIDIL [Concomitant]
     Active Substance: FENOFIBRATE
     Indication: HYPERTRIGLYCERIDAEMIA
     Dosage: OVER 5 YEARS AGO
     Route: 048
     Dates: start: 2014
  5. ROSUCOR [Suspect]
     Active Substance: ROSUVASTATIN CALCIUM
     Indication: HYPERCHOLESTEROLAEMIA
     Route: 048
     Dates: start: 20190919, end: 20190922
  6. JARDIANCE [Concomitant]
     Active Substance: EMPAGLIFLOZIN
     Indication: TYPE 2 DIABETES MELLITUS
     Dosage: ONE TABLET IN THE MORNING, OVER 5 YEARS AGO
     Dates: start: 2014

REACTIONS (3)
  - Urinary tract infection [Recovered/Resolved]
  - Dysuria [Recovered/Resolved]
  - Urinary incontinence [Recovered/Resolved]

NARRATIVE: CASE EVENT DATE: 201909
